FAERS Safety Report 4412861-0 (Version None)
Quarter: 2004Q3

REPORT INFORMATION
  Report Type: 
  Country: None (occurrence: None)
  Receive Date: 20040802
  Receipt Date: 20040621
  Transmission Date: 20050211
  Serious: Yes (Hospitalization, Other)
  Sender: FDA-Public Use
  Company Number: FR-BRISTOL-MYERS SQUIBB COMPANY-12621769

PATIENT
  Age: 73 Year
  Sex: Female

DRUGS (10)
  1. COUMADIN [Suspect]
     Dosage: 2MG TABLET X 2.5/DAY= 5MG DAY
     Route: 048
     Dates: end: 20040219
  2. ERYTHROCIN STEARATE [Suspect]
     Indication: ANTI-INFECTIVE THERAPY
     Dosage: 1G X 4 = 4000MG/DAY
     Route: 048
     Dates: start: 20040123
  3. DEROXAT [Suspect]
     Route: 048
     Dates: start: 20040123, end: 20040204
  4. RENITEC [Concomitant]
  5. LODOZ [Concomitant]
     Dates: end: 20040101
  6. LASIX [Concomitant]
  7. LEVOTHYROXINE SODIUM [Concomitant]
     Dosage: 75 UG/DAY
  8. DIGOXIN [Concomitant]
  9. TRINITRINE [Concomitant]
     Dosage: 5MG PATCH
     Route: 023
     Dates: end: 20040101
  10. ZYLORIC [Concomitant]
     Dates: end: 20040101

REACTIONS (8)
  - ACCIDENTAL OVERDOSE [None]
  - HEADACHE [None]
  - INTERNATIONAL NORMALISED RATIO INCREASED [None]
  - LUNG DISORDER [None]
  - MEDICATION ERROR [None]
  - MUSCLE HAEMORRHAGE [None]
  - PROTHROMBIN TIME SHORTENED [None]
  - PYREXIA [None]
